FAERS Safety Report 6435933-8 (Version None)
Quarter: 2009Q4

REPORT INFORMATION
  Report Type: 
  Country: None (occurrence: None)
  Receive Date: 20091029
  Receipt Date: 20091018
  Transmission Date: 20100525
  Serious: Yes (Other)
  Sender: FDA-Public Use
  Company Number: THYM-1001267

PATIENT
  Age: 12 Year
  Sex: Male

DRUGS (6)
  1. THYMOGLOBULIN [Suspect]
     Indication: GRAFT VERSUS HOST DISEASE
     Dosage: 3.75 MG/KG, QD, INTRAVENOUS
     Route: 042
  2. THYMOGLOBULIN [Suspect]
     Indication: PROPHYLAXIS
     Dosage: 3.75 MG/KG, QD, INTRAVENOUS
     Route: 042
  3. FLUDARABINE PHOSPHATE [Concomitant]
  4. CYCLOPHOSPHAMIDE [Concomitant]
  5. CYCLOSPORINE [Concomitant]
  6. METHOTREXATE [Concomitant]

REACTIONS (9)
  - ACUTE GRAFT VERSUS HOST DISEASE IN SKIN [None]
  - CHRONIC GRAFT VERSUS HOST DISEASE [None]
  - EPSTEIN-BARR VIRUS ASSOCIATED LYMPHOPROLIFERATIVE DISORDER [None]
  - HEPATIC NEOPLASM [None]
  - HEPATOMEGALY [None]
  - LUNG NEOPLASM [None]
  - PHARYNGEAL DISORDER [None]
  - SINUS DISORDER [None]
  - SPLENOMEGALY [None]
